FAERS Safety Report 20797136 (Version 2)
Quarter: 2022Q2

REPORT INFORMATION
  Report Type: Spontaneous
  Country: US (occurrence: US)
  Receive Date: 20220506
  Receipt Date: 20220516
  Transmission Date: 20220721
  Serious: Yes (Life-Threatening, Hospitalization)
  Sender: FDA-Public Use
  Company Number: US-ALKERMES INC.-ALK-2022-002094

PATIENT
  Sex: Female

DRUGS (2)
  1. VIVITROL [Suspect]
     Active Substance: NALTREXONE
     Indication: Drug use disorder
     Dosage: 380 MILLIGRAM, QMO
     Route: 030
     Dates: start: 20220428
  2. TIANEPTINE [Suspect]
     Active Substance: TIANEPTINE
     Indication: Restless legs syndrome
     Dosage: UNK
     Route: 065

REACTIONS (4)
  - Withdrawal syndrome [Recovered/Resolved]
  - Anxiety [Recovered/Resolved]
  - Contraindicated product administered [Recovered/Resolved]
  - Diarrhoea [Unknown]

NARRATIVE: CASE EVENT DATE: 20220401
